FAERS Safety Report 21907823 (Version 1)
Quarter: 2023Q1

REPORT INFORMATION
  Report Type: Spontaneous
  Country: FR (occurrence: FR)
  Receive Date: 20230125
  Receipt Date: 20230125
  Transmission Date: 20230418
  Serious: Yes (Other)
  Sender: FDA-Public Use
  Company Number: FR-SANOFI-01455453

PATIENT
  Sex: Female

DRUGS (1)
  1. DUPIXENT [Suspect]
     Active Substance: DUPILUMAB
     Dosage: UNK

REACTIONS (5)
  - Systemic lupus erythematosus [Unknown]
  - NSAID exacerbated respiratory disease [Unknown]
  - Acne [Recovered/Resolved]
  - Pustule [Recovered/Resolved]
  - Creatinine urine increased [Unknown]
